FAERS Safety Report 15478310 (Version 1)
Quarter: 2018Q4

REPORT INFORMATION
  Report Type: Spontaneous
  Country: US (occurrence: US)
  Receive Date: 20181002
  Receipt Date: 20181002
  Transmission Date: 20190205
  Serious: Yes (Hospitalization)
  Sender: FDA-Public Use
  Company Number: None

PATIENT
  Age: 71 Year
  Sex: Female

DRUGS (10)
  1. NOVOLOG [Concomitant]
     Active Substance: INSULIN ASPART
  2. FORTEO [Suspect]
     Active Substance: TERIPARATIDE
     Indication: OSTEOPOROSIS
     Route: 058
     Dates: start: 20171018
  3. LISINOPRIL. [Concomitant]
     Active Substance: LISINOPRIL
  4. LANTUS [Concomitant]
     Active Substance: INSULIN GLARGINE
  5. GABAPENTIN. [Concomitant]
     Active Substance: GABAPENTIN
  6. CLOPIDOGREL [Concomitant]
     Active Substance: CLOPIDOGREL BISULFATE
  7. SERTRALINE [Concomitant]
     Active Substance: SERTRALINE HYDROCHLORIDE
  8. POTASSIUM CHLORIDE. [Concomitant]
     Active Substance: POTASSIUM CHLORIDE
  9. SIMVASTATIN. [Concomitant]
     Active Substance: SIMVASTATIN
  10. MOMETASONE [Concomitant]
     Active Substance: MOMETASONE

REACTIONS (2)
  - Fall [None]
  - Therapy cessation [None]

NARRATIVE: CASE EVENT DATE: 20180926
